FAERS Safety Report 13014483 (Version 2)
Quarter: 2016Q4

REPORT INFORMATION
  Report Type: Report from Study
  Country: JP (occurrence: JP)
  Receive Date: 20161209
  Receipt Date: 20161229
  Transmission Date: 20170207
  Serious: Yes (Hospitalization, Other)
  Sender: FDA-Public Use
  Company Number: JP-GILEAD-2016-0247187

PATIENT
  Age: 52 Year
  Sex: Female
  Weight: 43.4 kg

DRUGS (15)
  1. FLORID                             /00310801/ [Concomitant]
     Active Substance: MICONAZOLE
     Indication: STOMATITIS
     Dosage: 1.25 G, QID
     Route: 048
     Dates: start: 20160816, end: 20160915
  2. VALACICLOVIR [Concomitant]
     Active Substance: VALACYCLOVIR HYDROCHLORIDE
     Indication: HERPES ZOSTER
     Dosage: 500 MG, TID
     Route: 048
     Dates: start: 20160902, end: 20160913
  3. RIBAVIRIN. [Suspect]
     Active Substance: RIBAVIRIN
     Indication: CHRONIC HEPATITIS C
     Dosage: 600 MG PER DAY, TWICE A DAY
     Route: 048
     Dates: start: 20160621, end: 20160913
  4. BLOPRESS [Concomitant]
     Active Substance: CANDESARTAN CILEXETIL
     Indication: HYPERTENSION
     Dosage: 8 MG, QD
     Route: 048
     Dates: start: 2003
  5. SOFOSBUVIR [Suspect]
     Active Substance: SOFOSBUVIR
     Indication: CHRONIC HEPATITIS C
     Dosage: 400 MG, QD
     Route: 048
     Dates: start: 20160621, end: 20160913
  6. MUCODYNE [Concomitant]
     Active Substance: CARBOCYSTEINE
     Indication: ASTHMA
     Dosage: 500 MG, BID
     Route: 048
     Dates: start: 2003
  7. MEYLON [Concomitant]
     Active Substance: SODIUM BICARBONATE
     Indication: MENIERE^S DISEASE
     Dosage: 20 ML, QD
     Route: 042
     Dates: start: 20160927, end: 20160927
  8. MEYLON [Concomitant]
     Active Substance: SODIUM BICARBONATE
     Dosage: 20 ML, QD
     Route: 042
     Dates: start: 20161011, end: 20161011
  9. DRAMAMINE [Concomitant]
     Active Substance: DIMENHYDRINATE
     Indication: MENIERE^S DISEASE
     Dosage: 50 MG, BID
     Route: 048
     Dates: start: 2003
  10. URSO [Concomitant]
     Active Substance: URSODIOL
     Indication: CHRONIC HEPATITIS C
     Dosage: 200 MG, TID
     Route: 048
     Dates: start: 2003
  11. LENDORMIN [Concomitant]
     Active Substance: BROTIZOLAM
     Indication: ANXIETY
     Dosage: 0.25 MG, QD
     Route: 048
     Dates: start: 2003
  12. MIGSIS [Concomitant]
     Active Substance: LOMERIZINE HYDROCHLORIDE
     Indication: MIGRAINE
     Dosage: 5 MG, BID
     Route: 048
     Dates: start: 201512
  13. CONSTAN                            /00595201/ [Concomitant]
     Active Substance: ALPRAZOLAM
     Indication: ANXIETY
     Dosage: 0.4 MG, TID
     Route: 048
     Dates: start: 2003
  14. MERISLON [Concomitant]
     Active Substance: BETAHISTINE MESILATE
     Indication: MENIERE^S DISEASE
     Dosage: 6 MG, TID
     Route: 048
     Dates: start: 2003
  15. PULMICORT TURBUHALER [Concomitant]
     Active Substance: BUDESONIDE
     Indication: ASTHMA
     Dosage: 1 DF, BID
     Route: 055
     Dates: start: 2003

REACTIONS (1)
  - Castleman^s disease [Not Recovered/Not Resolved]

NARRATIVE: CASE EVENT DATE: 20160915
